FAERS Safety Report 7781579-9 (Version None)
Quarter: 2011Q3

REPORT INFORMATION
  Report Type: 
  Country: None (occurrence: None)
  Receive Date: 20110927
  Receipt Date: 20110923
  Transmission Date: 20111222
  Serious: No
  Sender: FDA-Public Use
  Company Number: US-PFIZER INC-2011222110

PATIENT
  Sex: Male
  Weight: 86.2 kg

DRUGS (2)
  1. CHANTIX [Suspect]
     Dosage: UNK
     Route: 048
  2. CHANTIX [Suspect]
     Indication: SMOKING CESSATION THERAPY
     Dosage: 0.5 MG, 1X/DAY
     Route: 048
     Dates: start: 20110501

REACTIONS (4)
  - FEELING ABNORMAL [None]
  - NIGHTMARE [None]
  - DRUG INEFFECTIVE [None]
  - NAUSEA [None]
